FAERS Safety Report 8964103 (Version 1)
Quarter: 2012Q4

REPORT INFORMATION
  Report Type: 
  Country: FR (occurrence: FR)
  Receive Date: 20121214
  Receipt Date: 20121214
  Transmission Date: 20130627
  Serious: Yes (Life-Threatening, Hospitalization, Other)
  Sender: FDA-Public Use
  Company Number: FR-MERCK-1212FRA003794

PATIENT
  Sex: Male

DRUGS (5)
  1. JANUMET [Suspect]
     Indication: TYPE 2 DIABETES MELLITUS
     Dosage: 1 DF, qd
     Route: 048
     Dates: start: 20120430, end: 20120801
  2. METFORMIN [Concomitant]
     Indication: TYPE 2 DIABETES MELLITUS
     Dosage: 2 g, qd
     Route: 048
     Dates: end: 20120801
  3. GLIMEPIRIDE [Concomitant]
     Indication: TYPE 2 DIABETES MELLITUS
     Dosage: 2 mg, qd
     Route: 048
     Dates: end: 20120801
  4. COTAREG [Concomitant]
     Indication: HYPERTENSION
     Dosage: 160 mg, qd
     Route: 048
  5. ALLOPURINOL [Concomitant]
     Dosage: UNK
     Route: 048

REACTIONS (1)
  - Pancreatic carcinoma [Recovering/Resolving]
